FAERS Safety Report 8140119 (Version 6)
Quarter: 2012Q4

REPORT INFORMATION
  Report Type: 
  Country: CA (occurrence: CA)
  Receive Date: 20110916
  Receipt Date: 20121010
  Transmission Date: 20130627
  Serious: Yes (Hospitalization, Other)
  Sender: FDA-Public Use
  Company Number: PHHY2011CA82035

PATIENT
  Age: 70 Year
  Sex: Male

DRUGS (2)
  1. CLOZARIL [Suspect]
     Indication: SCHIZOPHRENIA
     Dates: start: 20050616
  2. CLOZARIL [Suspect]
     Indication: ABNORMAL BEHAVIOUR
     Dosage: 50 mg
     Route: 048
     Dates: start: 2010

REACTIONS (3)
  - Wound abscess [Not Recovered/Not Resolved]
  - Decubitus ulcer [Recovering/Resolving]
  - Staphylococcal infection [Unknown]
